FAERS Safety Report 4456634-1 (Version None)
Quarter: 2004Q3

REPORT INFORMATION
  Report Type: 
  Country: None (occurrence: None)
  Receive Date: 20040921
  Receipt Date: 20040909
  Transmission Date: 20050211
  Serious: Yes (Hospitalization)
  Sender: FDA-Public Use
  Company Number: 2004-120189-NL

PATIENT
  Age: 33 Year
  Sex: Female

DRUGS (5)
  1. VECURONIUM BROMIDE [Suspect]
     Indication: INDUCTION OF ANAESTHESIA
     Dosage: INTRAVENOUS (NOS)
     Route: 042
     Dates: start: 20040214
  2. MIDAZOLAM HYDROCHLORIDE [Concomitant]
  3. PROPOFOL [Concomitant]
  4. SUFENTANIL [Concomitant]
  5. CEFAZOLIN SODIUM [Concomitant]

REACTIONS (2)
  - ANAPHYLACTIC SHOCK [None]
  - PLASMIN INCREASED [None]
